FAERS Safety Report 5303018-X (Version None)
Quarter: 2007Q2

REPORT INFORMATION
  Report Type: 
  Country: None (occurrence: None)
  Receive Date: 20070420
  Receipt Date: 20070420
  Transmission Date: 20071010
  Serious: Yes (Death, Hospitalization)
  Sender: FDA-Public Use
  Company Number: None

PATIENT
  Age: 31 Year
  Sex: Female

DRUGS (1)
  1. MIFEPRISTONE [Suspect]
     Indication: ABORTION INDUCED
     Dosage: 200 MG PO
     Route: 048

REACTIONS (7)
  - ANAEMIA [None]
  - BRAIN OEDEMA [None]
  - LOSS OF CONSCIOUSNESS [None]
  - MELAENA [None]
  - PETECHIAE [None]
  - STUPOR [None]
  - THROMBOTIC THROMBOCYTOPENIC PURPURA [None]
